FAERS Safety Report 23020203 (Version 1)
Quarter: 2023Q4

REPORT INFORMATION
  Report Type: Spontaneous
  Country: US (occurrence: None)
  Receive Date: 20231002
  Receipt Date: 20231002
  Transmission Date: 20240109
  Serious: Yes (Hospitalization)
  Sender: FDA-Public Use
  Company Number: None

PATIENT
  Age: 74 Year
  Sex: Male
  Weight: 56 kg

DRUGS (7)
  1. YESCARTA [Suspect]
     Active Substance: AXICABTAGENE CILOLEUCEL
     Indication: Diffuse large B-cell lymphoma
     Dosage: OTHER FREQUENCY : ONCE;?
     Route: 042
     Dates: start: 20230515
  2. lacosamide (Vimpat [Concomitant]
     Dates: start: 20230521, end: 20230527
  3. dexAMETHasone (Decadron) injection [Concomitant]
     Dates: start: 20230521, end: 20230616
  4. anakinra (Kineret) [Concomitant]
     Dates: start: 20230521, end: 20230531
  5. KEPPRA [Concomitant]
     Active Substance: LEVETIRACETAM
     Dates: start: 20230515, end: 20230622
  6. ganciclovir (Cytovene [Concomitant]
     Dates: start: 2023, end: 20230622
  7. FLAGYL [Concomitant]
     Active Substance: METRONIDAZOLE\METRONIDAZOLE HYDROCHLORIDE
     Dates: start: 20230517, end: 20230522

REACTIONS (3)
  - Immune effector cell-associated neurotoxicity syndrome [None]
  - Cytomegalovirus viraemia [None]
  - Streptococcal infection [None]

NARRATIVE: CASE EVENT DATE: 20230501
